FAERS Safety Report 5416808-X (Version None)
Quarter: 2007Q3

REPORT INFORMATION
  Report Type: 
  Country: None (occurrence: None)
  Receive Date: 20070815
  Receipt Date: 20070815
  Transmission Date: 20080115
  Serious: Yes (Life-Threatening, Hospitalization)
  Sender: FDA-Public Use
  Company Number: None

PATIENT
  Sex: Female
  Weight: 62 kg

DRUGS (2)
  1. LUPRON [Suspect]
     Indication: INFERTILITY FEMALE
     Dosage: 5 UNITS -0.25 MG- ONCE SQ
     Route: 058
     Dates: start: 20070703, end: 20070706
  2. ORTHO CYCLEN-21 [Suspect]
     Dosage: 1 TABLET ONCE DAILY PO
     Route: 048
     Dates: start: 20070601, end: 20070706

REACTIONS (6)
  - APHASIA [None]
  - CEREBRAL INFARCTION [None]
  - COAGULOPATHY [None]
  - HEADACHE [None]
  - INTRACRANIAL VENOUS SINUS THROMBOSIS [None]
  - VISUAL DISTURBANCE [None]
